FAERS Safety Report 10774882 (Version 4)
Quarter: 2015Q3

REPORT INFORMATION
  Report Type: Spontaneous
  Country: ES (occurrence: ES)
  Receive Date: 20150209
  Receipt Date: 20150925
  Transmission Date: 20151125
  Serious: Yes (Other)
  Sender: FDA-Public Use
  Company Number: ES-AMGEN-ESPSP2015010839

PATIENT
  Age: 72 Year
  Sex: Female

DRUGS (4)
  1. BLISSEL [Concomitant]
     Indication: ATROPHIC VULVOVAGINITIS
     Dosage: UNK
     Route: 067
     Dates: start: 201405
  2. PROLIA [Suspect]
     Active Substance: DENOSUMAB
     Indication: OSTEOPOROSIS POSTMENOPAUSAL
     Dosage: 60 MG, Q6MO
     Route: 058
     Dates: start: 20140525
  3. VENORUTON                          /00027704/ [Concomitant]
     Indication: VARICOSE VEIN
     Dosage: UNK
     Route: 048
     Dates: start: 201405
  4. DEMILOS [Concomitant]
     Active Substance: CALCIUM CARBONATE\CHOLECALCIFEROL
     Indication: SUPPLEMENTATION THERAPY
     Dosage: UNK
     Route: 048
     Dates: start: 201405

REACTIONS (6)
  - Fungal infection [Unknown]
  - Tooth disorder [Unknown]
  - Urinary tract infection [Unknown]
  - Vaginal infection [Unknown]
  - Osteonecrosis of jaw [Recovering/Resolving]
  - Pain [Recovered/Resolved]

NARRATIVE: CASE EVENT DATE: 201408
